FAERS Safety Report 23916412 (Version 1)
Quarter: 2024Q2

REPORT INFORMATION
  Report Type: Spontaneous
  Country: CA (occurrence: CA)
  Receive Date: 20240529
  Receipt Date: 20240529
  Transmission Date: 20240716
  Serious: Yes (Other)
  Sender: FDA-Public Use
  Company Number: CA-SANDOZ-SDZ2024CA052551

PATIENT
  Sex: Female

DRUGS (4)
  1. ETANERCEPT [Suspect]
     Active Substance: ETANERCEPT
     Indication: Rheumatoid arthritis
     Dosage: 50 MG WEEKLY
     Route: 058
     Dates: start: 20190715
  2. ETANERCEPT [Suspect]
     Active Substance: ETANERCEPT
     Dosage: 50 MG WEEKLY
     Route: 058
     Dates: start: 202106
  3. ETANERCEPT [Suspect]
     Active Substance: ETANERCEPT
     Dosage: ONE INJECTION PER TWO WEEKS
     Route: 058
  4. METHOTREXATE [Suspect]
     Active Substance: METHOTREXATE
     Indication: Rheumatoid arthritis
     Dosage: 20 MG WEEKLY
     Route: 048
     Dates: start: 2019, end: 202106

REACTIONS (1)
  - Rheumatoid arthritis [Unknown]
